FAERS Safety Report 17468191 (Version 1)
Quarter: 2020Q1

REPORT INFORMATION
  Report Type: Spontaneous
  Country: FR (occurrence: FR)
  Receive Date: 20200227
  Receipt Date: 20200227
  Transmission Date: 20200409
  Serious: Yes (Hospitalization, Other)
  Sender: FDA-Public Use
  Company Number: FR-SA-2020SA050979

PATIENT
  Age: 27 Year
  Sex: Male

DRUGS (1)
  1. RIFINAH [Suspect]
     Active Substance: ISONIAZID\RIFAMPIN
     Indication: TUBERCULOSIS
     Dosage: 2 DF, QD
     Route: 048
     Dates: start: 20200122, end: 20200202

REACTIONS (2)
  - Brief psychotic disorder with marked stressors [Recovering/Resolving]
  - Mental disorder [Recovering/Resolving]

NARRATIVE: CASE EVENT DATE: 20200202
